FAERS Safety Report 22179722 (Version 6)
Quarter: 2025Q2

REPORT INFORMATION
  Report Type: Report from Study
  Country: US (occurrence: US)
  Receive Date: 20230406
  Receipt Date: 20250618
  Transmission Date: 20250717
  Serious: Yes (Hospitalization, Other)
  Sender: UCB
  Company Number: US-UCBSA-2023017387

PATIENT
  Sex: Female
  Weight: 98 kg

DRUGS (6)
  1. FINTEPLA [Suspect]
     Active Substance: FENFLURAMINE
     Indication: Severe myoclonic epilepsy of infancy
     Dosage: 5 MILLILITER, 2X/DAY (BID)
     Dates: start: 20230301
  2. FINTEPLA [Suspect]
     Active Substance: FENFLURAMINE
     Dosage: 5 MILLILITER, 2X/DAY (BID)
     Dates: start: 20230323
  3. FINTEPLA [Suspect]
     Active Substance: FENFLURAMINE
     Dates: start: 20230329
  4. FINTEPLA [Suspect]
     Active Substance: FENFLURAMINE
     Dosage: 5 MILLILITER, 2X/DAY (BID)
  5. FINTEPLA [Suspect]
     Active Substance: FENFLURAMINE
     Dosage: 5 MILLILITER, 2X/DAY (BID)
  6. FINTEPLA [Suspect]
     Active Substance: FENFLURAMINE
     Dosage: 6 MILLILITER, 2X/DAY (BID)

REACTIONS (6)
  - Seizure [Not Recovered/Not Resolved]
  - Pneumonia aspiration [Not Recovered/Not Resolved]
  - Gastrostomy [Recovered/Resolved]
  - Condition aggravated [Unknown]
  - Cardiac disorder [Unknown]
  - Aortic valve thickening [Unknown]

NARRATIVE: CASE EVENT DATE: 20230101
